FAERS Safety Report 16432244 (Version 1)
Quarter: 2019Q2

REPORT INFORMATION
  Report Type: Spontaneous
  Country: US (occurrence: US)
  Receive Date: 20190614
  Receipt Date: 20190614
  Transmission Date: 20190711
  Serious: Yes (Other)
  Sender: FDA-Public Use
  Company Number: None

PATIENT
  Age: 75 Year
  Sex: Female
  Weight: 69.9 kg

DRUGS (1)
  1. TOPOTECAN [Suspect]
     Active Substance: TOPOTECAN HYDROCHLORIDE
     Indication: SMALL CELL LUNG CANCER
     Route: 042
     Dates: start: 20190607, end: 20190611

REACTIONS (4)
  - Dyspnoea [None]
  - Chest pain [None]
  - Infusion related reaction [None]
  - Feeling hot [None]

NARRATIVE: CASE EVENT DATE: 20190609
